FAERS Safety Report 18251995 (Version 1)
Quarter: 2020Q3

REPORT INFORMATION
  Report Type: Spontaneous
  Country: US (occurrence: US)
  Receive Date: 20200909
  Receipt Date: 20200909
  Transmission Date: 20201103
  Serious: Yes (Other)
  Sender: FDA-Public Use
  Company Number: None

PATIENT
  Age: 51 Year
  Sex: Male
  Weight: 90 kg

DRUGS (7)
  1. FOLIC ACID. [Concomitant]
     Active Substance: FOLIC ACID
  2. PREDNISONE. [Concomitant]
     Active Substance: PREDNISONE
  3. REMICADE [Concomitant]
     Active Substance: INFLIXIMAB
  4. HYDROCODONE [Concomitant]
     Active Substance: HYDROCODONE
  5. METHOTREXATE. [Concomitant]
     Active Substance: METHOTREXATE
  6. FISH OIL [Concomitant]
     Active Substance: FISH OIL
  7. REMICADE [Suspect]
     Active Substance: INFLIXIMAB
     Indication: RHEUMATOID ARTHRITIS
     Dosage: ?          OTHER FREQUENCY:EVERY 7 WEEKS;OTHER ROUTE:INFUSION?
     Dates: start: 20140110, end: 20200909

REACTIONS (1)
  - Colon cancer [None]

NARRATIVE: CASE EVENT DATE: 20200907
